FAERS Safety Report 4735724-X (Version None)
Quarter: 2005Q3

REPORT INFORMATION
  Report Type: 
  Country: None (occurrence: None)
  Receive Date: 20050805
  Receipt Date: 20050622
  Transmission Date: 20060218
  Serious: Yes (Death, Hospitalization)
  Sender: FDA-Public Use
  Company Number: FR-BOEHRINGER INGELHEIM PHARMACEUTICALS, INC.-2005-FF-00464FF

PATIENT
  Sex: Male
  Weight: 35 kg

DRUGS (6)
  1. TIPRANAVIR + RITONAVIR CO-ADMIN [Suspect]
     Indication: HIV INFECTION
     Dosage: TPV/RTV : 500/200 MG B.I.D.
     Route: 048
     Dates: start: 20040519, end: 20050708
  2. VIDEX [Concomitant]
     Indication: HIV INFECTION
     Route: 048
     Dates: start: 19941215
  3. ZIAGEN [Concomitant]
     Indication: HIV INFECTION
     Route: 048
     Dates: start: 20040519
  4. EPIVIR [Concomitant]
     Indication: HIV INFECTION
     Route: 048
     Dates: start: 20040519
  5. SUSTIVA [Concomitant]
     Indication: HIV INFECTION
     Route: 048
     Dates: start: 20040813
  6. KALETRA [Concomitant]
     Indication: HIV INFECTION
     Dosage: 12 CAPSULES DAILY
     Route: 048
     Dates: start: 20040813

REACTIONS (9)
  - ANAL CANCER [None]
  - BACTERIAL SEPSIS [None]
  - CACHEXIA [None]
  - CARDIO-RESPIRATORY ARREST [None]
  - DIARRHOEA [None]
  - GENERAL PHYSICAL HEALTH DETERIORATION [None]
  - LUNG DISORDER [None]
  - PROTEUS INFECTION [None]
  - RECTAL CANCER [None]
